FAERS Safety Report 9864779 (Version 1)
Quarter: 2014Q1

REPORT INFORMATION
  Report Type: Spontaneous
  Country: US (occurrence: US)
  Receive Date: 20140203
  Receipt Date: 20140203
  Transmission Date: 20141002
  Serious: No
  Sender: FDA-Public Use
  Company Number: US-AMGEN-USASP2014002659

PATIENT
  Age: 55 Year
  Sex: Female

DRUGS (12)
  1. ENBREL [Suspect]
     Indication: PSORIASIS
     Dosage: 50 MG, QWK
     Route: 065
     Dates: start: 20131213
  2. METHOTREXATE [Concomitant]
     Dosage: UNK
  3. DESONIDE [Concomitant]
     Dosage: 0.5 %, UNK
  4. ASPIRIN [Concomitant]
     Dosage: UNK
  5. ALBUTEROL SULFATE [Concomitant]
     Dosage: UNK
  6. DIOVAN [Concomitant]
     Dosage: UNK
  7. FISH OIL [Concomitant]
     Dosage: UNK
  8. FLONASE                            /00908302/ [Concomitant]
     Dosage: UNK
  9. GLIMEPIRIDE [Concomitant]
     Dosage: UNK
  10. HUMULIN N [Concomitant]
     Dosage: UNK
  11. ZITHROMAX [Concomitant]
     Dosage: UNK
  12. HALOBETASOL PROPIONATE [Concomitant]
     Dosage: UNK

REACTIONS (5)
  - Injection site erythema [Not Recovered/Not Resolved]
  - Injection site pruritus [Not Recovered/Not Resolved]
  - Injection site warmth [Not Recovered/Not Resolved]
  - Injection site pain [Not Recovered/Not Resolved]
  - Injection site reaction [Not Recovered/Not Resolved]
